FAERS Safety Report 10647241 (Version 3)
Quarter: 2015Q1

REPORT INFORMATION
  Report Type: Spontaneous
  Country: US (occurrence: US)
  Receive Date: 20141211
  Receipt Date: 20150312
  Transmission Date: 20150720
  Serious: No
  Sender: FDA-Public Use
  Company Number: US-INCYTE CORPORATION-2014IN003113

PATIENT
  Age: 88 Year
  Sex: Female
  Weight: 56.24 kg

DRUGS (11)
  1. SPIRIVA [Concomitant]
     Active Substance: TIOTROPIUM BROMIDE MONOHYDRATE
  2. COUMADIN [Concomitant]
     Active Substance: WARFARIN SODIUM
     Dosage: UNK
  3. JAKAFI [Suspect]
     Active Substance: RUXOLITINIB
     Indication: MYELOFIBROSIS
     Dosage: 5 MG, BID
     Route: 048
     Dates: start: 20140818, end: 2014
  4. OMEPRAZOLE. [Concomitant]
     Active Substance: OMEPRAZOLE
  5. BIOTIN [Concomitant]
     Active Substance: BIOTIN
  6. EYE DROPS                          /00256502/ [Concomitant]
     Active Substance: OXYMETAZOLINE
  7. JAKAFI [Suspect]
     Active Substance: RUXOLITINIB
     Dosage: 10 MG, BID
     Route: 048
     Dates: start: 20140923
  8. FUROSEMIDE. [Concomitant]
     Active Substance: FUROSEMIDE
  9. POLY-VI-SOL                        /00200301/ [Concomitant]
  10. IRON [Concomitant]
     Active Substance: IRON
  11. LOSARTAN POTASSIUM. [Concomitant]
     Active Substance: LOSARTAN POTASSIUM

REACTIONS (10)
  - Skin discolouration [Unknown]
  - Hot flush [Unknown]
  - Skin haemorrhage [Unknown]
  - Platelet count decreased [Unknown]
  - Haemoglobin decreased [Unknown]
  - Hyperhidrosis [Unknown]
  - Feeling hot [Unknown]
  - Asthenia [Unknown]
  - Platelet count increased [Recovering/Resolving]
  - White blood cell count increased [Unknown]

NARRATIVE: CASE EVENT DATE: 2014
